FAERS Safety Report 4312111-X (Version None)
Quarter: 2004Q1

REPORT INFORMATION
  Report Type: 
  Country: None (occurrence: None)
  Receive Date: 20040304
  Receipt Date: 19990604
  Transmission Date: 20041129
  Serious: Yes (Other)
  Sender: FDA-Public Use
  Company Number: GB-JNJFOC-20031104537

PATIENT
  Age: 58 Year
  Sex: Female
  Weight: 57 kg

DRUGS (12)
  1. REMICADE [Suspect]
     Indication: RHEUMATOID ARTHRITIS
     Dosage: 10 MG/KG, INTRAVENOUS
     Route: 042
     Dates: start: 19950322
  2. REMICADE [Suspect]
     Indication: RHEUMATOID ARTHRITIS
     Dosage: 10 MG/KG, INTRAVENOUS
     Route: 042
     Dates: start: 19950405
  3. REMICADE [Suspect]
     Indication: RHEUMATOID ARTHRITIS
     Dosage: 10 MG/KG, INTRAVENOUS
     Route: 042
     Dates: start: 19950503
  4. REMICADE [Suspect]
     Indication: RHEUMATOID ARTHRITIS
     Dosage: 10 MG/KG, INTRAVENOUS
     Route: 042
     Dates: start: 19950531
  5. REMICADE [Suspect]
     Indication: RHEUMATOID ARTHRITIS
     Dosage: 10 MG/KG, INTRAVENOUS
     Route: 042
     Dates: start: 19950628
  6. METHOTREXATE [Concomitant]
  7. ARTHROTEC [Concomitant]
  8. ACETAMINOPHEN [Concomitant]
  9. COD LIVER OIL (COD-LIVER OIL) CAPSULES [Concomitant]
  10. EVENING PRIMROSE OIL (EVENING PRIMROSE OIL) [Concomitant]
  11. PARACETAMOL WITH CODEINE (PANADEINE CO) [Concomitant]
  12. PIRITON (CHLORPHENAMINE MALEATE) TABLETS [Concomitant]

REACTIONS (4)
  - LENTIGO MALIGNA STAGE UNSPECIFIED [None]
  - LYMPHADENOPATHY [None]
  - MALIGNANT MELANOMA [None]
  - SJOGREN'S SYNDROME [None]
